FAERS Safety Report 5767896-2 (Version None)
Quarter: 2008Q2

REPORT INFORMATION
  Report Type: 
  Country: None (occurrence: None)
  Receive Date: 20080606
  Receipt Date: 20080523
  Transmission Date: 20081010
  Serious: Yes (Life-Threatening)
  Sender: FDA-Public Use
  Company Number: 2008EU000178

PATIENT
  Age: 60 Year
  Sex: Male
  Weight: 84.7 kg

DRUGS (8)
  1. PROGRAF [Suspect]
     Indication: RENAL TRANSPLANT
     Dosage: 2.5 MG, UID/QD, ORAL; 1 MG, BID
     Route: 048
     Dates: start: 20071210
  2. PROGRAF [Suspect]
     Indication: RENAL TRANSPLANT
     Dosage: 2.5 MG, UID/QD, ORAL; 1 MG, BID
     Route: 048
     Dates: start: 20080221
  3. PREDNISOLONE [Concomitant]
  4. ASPIRIN [Concomitant]
  5. OMEPRAZOLE [Concomitant]
  6. NIFEDIPINE [Concomitant]
  7. ENALAPRIL MALEATE [Concomitant]
  8. SIMVASTATINA MEPHA (SIMVASTATIN) [Concomitant]

REACTIONS (2)
  - DRUG LEVEL INCREASED [None]
  - PHARMACEUTICAL PRODUCT COMPLAINT [None]
